FAERS Safety Report 5806149-0 (Version None)
Quarter: 2008Q3

REPORT INFORMATION
  Report Type: 
  Country: None (occurrence: None)
  Receive Date: 20080710
  Receipt Date: 20080707
  Transmission Date: 20090109
  Serious: Yes (Hospitalization)
  Sender: FDA-Public Use
  Company Number: US-GILEAD-2008-0017161

PATIENT
  Sex: Female

DRUGS (10)
  1. LETAIRIS [Suspect]
     Indication: PULMONARY ARTERIAL HYPERTENSION
     Route: 048
     Dates: start: 20080523
  2. FLOLAN [Concomitant]
     Route: 042
  3. DOXY-CAPS [Concomitant]
     Route: 048
  4. LIPITOR [Concomitant]
     Route: 048
  5. REVATIO [Concomitant]
  6. SPIRONOLACTONE [Concomitant]
     Route: 048
  7. NEXIUM [Concomitant]
     Route: 048
  8. DIGOXIN [Concomitant]
     Route: 048
  9. LASIX [Concomitant]
     Route: 048
  10. POTASSIUM CHLORIDE [Concomitant]
     Route: 048

REACTIONS (1)
  - CENTRAL LINE INFECTION [None]
